FAERS Safety Report 5527897-6 (Version None)
Quarter: 2007Q4

REPORT INFORMATION
  Report Type: 
  Country: None (occurrence: None)
  Receive Date: 20071126
  Receipt Date: 20071126
  Transmission Date: 20080405
  Serious: No
  Sender: FDA-Public Use
  Company Number: None

PATIENT
  Age: 44 Year
  Sex: Female
  Weight: 136.0791 kg

DRUGS (1)
  1. MIRAPEX [Suspect]
     Indication: RESTLESS LEGS SYNDROME
     Dosage: 1 TABLET 3 TIMES PER DAY
     Dates: start: 20060101, end: 20071129

REACTIONS (2)
  - ECONOMIC PROBLEM [None]
  - OBSESSIVE-COMPULSIVE DISORDER [None]
